FAERS Safety Report 9549989 (Version 2)
Quarter: 2013Q4

REPORT INFORMATION
  Report Type: Report from Study
  Country: US (occurrence: US)
  Receive Date: 20130924
  Receipt Date: 20131010
  Transmission Date: 20140711
  Serious: Yes (Other)
  Sender: FDA-Public Use
  Company Number: US-VIIV HEALTHCARE LIMITED-A1035172A

PATIENT
  Sex: Female

DRUGS (4)
  1. EPZICOM [Suspect]
     Indication: ANTIRETROVIRAL THERAPY
     Route: 065
  2. NORVIR [Suspect]
     Indication: ANTIRETROVIRAL THERAPY
  3. PREZISTA [Suspect]
     Indication: ANTIRETROVIRAL THERAPY
     Route: 048
  4. KALETRA [Suspect]
     Indication: ANTIRETROVIRAL THERAPY

REACTIONS (2)
  - Stillbirth [Unknown]
  - Exposure during pregnancy [Unknown]
